FAERS Safety Report 24223722 (Version 1)
Quarter: 2024Q3

REPORT INFORMATION
  Report Type: Spontaneous
  Country: GB (occurrence: GB)
  Receive Date: 20240819
  Receipt Date: 20240819
  Transmission Date: 20241016
  Serious: Yes (Disabling, Other)
  Sender: TEVA
  Company Number: GB-MHRA-TPP10526705C969232YC1723195690600

PATIENT
  Age: 55 Year
  Sex: Male
  Weight: 62 kg

DRUGS (5)
  1. PROMETHAZINE [Suspect]
     Active Substance: PROMETHAZINE HYDROCHLORIDE
     Indication: Adverse drug reaction
     Dosage: TPP YC - PLEASE RECLASSIFY
     Route: 048
     Dates: start: 20240704, end: 20240708
  2. ZOPICLONE [Concomitant]
     Active Substance: ZOPICLONE
     Indication: Ill-defined disorder
     Dosage: AT NIGHT AS NEEDED -TRY TO HAVE A BREAK, TPP YC - PLEASE RECLASSIFY
     Route: 065
     Dates: start: 20240207
  3. MELATONIN [Concomitant]
     Active Substance: MELATONIN
     Indication: Ill-defined disorder
     Dosage: AT NIGHT, TPP YC - PLEASE RECLASSIFY
     Route: 065
     Dates: start: 20240606, end: 20240706
  4. PROMETHAZINE HYDROCHLORIDE [Concomitant]
     Active Substance: PROMETHAZINE HYDROCHLORIDE
     Indication: Ill-defined disorder
     Dosage: TAKE 1 OR 2 AT NIGHT AS NEEDED FOR SLEEP, TPP YC - PLEASE RECLASSIFY
     Route: 065
     Dates: start: 20240704, end: 20240801
  5. MIRTAZAPINE [Concomitant]
     Active Substance: MIRTAZAPINE
     Indication: Ill-defined disorder
     Dosage: TAKE ONE NIGHT, TPP YC - PLEASE RECLASSIFY
     Route: 065
     Dates: start: 20240206

REACTIONS (1)
  - Arthritis [Recovered/Resolved]

NARRATIVE: CASE EVENT DATE: 20240704
